FAERS Safety Report 25611971 (Version 2)
Quarter: 2025Q3

REPORT INFORMATION
  Report Type: Spontaneous
  Country: US (occurrence: US)
  Receive Date: 20250728
  Receipt Date: 20250804
  Transmission Date: 20251020
  Serious: No
  Sender: TORRENT PHARMA INC.
  Company Number: US-TORRENT-00014444

PATIENT
  Sex: Male

DRUGS (1)
  1. SILDENAFIL CITRATE [Suspect]
     Active Substance: SILDENAFIL CITRATE
     Indication: Product used for unknown indication
     Dosage: ONE 100MG TABLET ONCE A DAY, FILLED DATE: 30-APR-2025. QUANTITY OF 90 TABLETS
     Route: 065

REACTIONS (1)
  - Drug ineffective [Unknown]

NARRATIVE: CASE EVENT DATE: 20250717
